FAERS Safety Report 9537940 (Version 1)
Quarter: 2013Q3

REPORT INFORMATION
  Report Type: Spontaneous
  Country: IT (occurrence: IT)
  Receive Date: 20130919
  Receipt Date: 20130919
  Transmission Date: 20140515
  Serious: Yes (Life-Threatening)
  Sender: FDA-Public Use
  Company Number: PHHY2013IT103970

PATIENT
  Age: 79 Year
  Sex: Female

DRUGS (9)
  1. CEFTRIAXONE SANDOZ [Suspect]
     Indication: RESPIRATORY TRACT INFECTION
     Dosage: 1 G, QW
     Route: 048
     Dates: start: 20130606, end: 20130606
  2. TAPAZOLE [Concomitant]
     Dosage: 5 MG, UNK
     Route: 048
  3. SPIRIVA [Concomitant]
     Dosage: 18 UG, UNK
  4. ALTIAZEM [Concomitant]
     Dosage: 60 MG, UNK
     Route: 048
  5. AMARYL [Concomitant]
     Dosage: 3 MG, UNK
     Route: 048
  6. PANTORC [Concomitant]
     Dosage: 20 MG, UNK
     Route: 048
  7. SERETIDE [Concomitant]
     Dosage: 25 UG, UNK
  8. ESAPENT [Concomitant]
     Dosage: 1 G, UNK
     Route: 048
  9. DERMATRANS /ITA/ [Concomitant]
     Dosage: 5 MG, UNK
     Route: 062

REACTIONS (4)
  - Nervous system disorder [Recovering/Resolving]
  - Loss of consciousness [Recovering/Resolving]
  - Malaise [Recovering/Resolving]
  - Anaphylactoid reaction [Recovering/Resolving]
